FAERS Safety Report 7845637-2 (Version None)
Quarter: 2011Q4

REPORT INFORMATION
  Report Type: 
  Country: None (occurrence: None)
  Receive Date: 20111025
  Receipt Date: 20111019
  Transmission Date: 20120403
  Serious: Yes (Other)
  Sender: FDA-Public Use
  Company Number: JP-B.I. PHARMACEUTICALS,INC./RIDGEFIELD-2011-BP-23663NB

PATIENT
  Age: 70 Year
  Sex: Female

DRUGS (5)
  1. VERAPAMIL HCL [Concomitant]
     Dosage: 40 MG
     Route: 048
  2. PRADAXA [Suspect]
     Indication: ATRIAL FIBRILLATION
     Dosage: 220 MG
     Route: 048
     Dates: start: 20110621, end: 20111002
  3. DISOPYRAMIDE PHOSPHATE [Concomitant]
     Dosage: 150 MG
     Route: 048
  4. AMLODIPINE [Concomitant]
     Indication: HYPERTENSION
     Dosage: 5 MG
     Route: 048
  5. LANSOPRAZOLE [Concomitant]
     Dosage: 30 MG
     Route: 048

REACTIONS (2)
  - DRUG INEFFECTIVE [None]
  - CEREBRAL INFARCTION [None]
